FAERS Safety Report 4455791-0 (Version None)
Quarter: 2004Q3

REPORT INFORMATION
  Report Type: 
  Country: None (occurrence: None)
  Receive Date: 20040920
  Receipt Date: 20040903
  Transmission Date: 20050211
  Serious: Yes (Disabling)
  Sender: FDA-Public Use
  Company Number: S04-SWI-04094-01

PATIENT
  Age: 91 Year
  Sex: Female

DRUGS (16)
  1. CITALOPRAM HYDROBROMIDE [Suspect]
     Indication: DEPRESSION
     Dosage: 20 MG QD PO
     Route: 048
     Dates: start: 20030801, end: 20040112
  2. CO-DAFALGAN [Suspect]
     Indication: PAIN
     Dosage: 30 MG QD PO
     Route: 048
     Dates: start: 20040102, end: 20040112
  3. ACETAMINOPHEN [Suspect]
     Indication: PAIN
     Dosage: 500 MG QD PO
     Route: 048
     Dates: start: 20031226, end: 20040101
  4. METOCLOPRAMIDE HYDROCHLORIDE [Suspect]
     Indication: VOMITING
     Dosage: 30 MG ONCE SC
     Route: 058
     Dates: start: 20031229, end: 20031229
  5. LORAZEPAM [Concomitant]
  6. NITRODERM (GLYCERTYL TRINITRATE) [Concomitant]
  7. CORVATON ^AVENTIS PHARMA^ (MOLSIDOMINE) [Concomitant]
  8. ALDACTONE [Concomitant]
  9. TOREM (TORASEMIDE) [Concomitant]
  10. NEXIUM [Concomitant]
  11. IMODIUM [Concomitant]
  12. RECORMON (ERYTHROPOIETIN HUMAN) [Concomitant]
  13. VITARUBIN (CYANOCOBALAMIN) [Concomitant]
  14. ENALAPRIL MALEATE [Concomitant]
  15. ALDOSTERONE [Concomitant]
  16. MORPHINE [Concomitant]

REACTIONS (13)
  - CHEST PAIN [None]
  - COMA [None]
  - DEPRESSED LEVEL OF CONSCIOUSNESS [None]
  - EPILEPSY [None]
  - FALL [None]
  - HAEMORRHAGE [None]
  - HEMIPLEGIA [None]
  - HYPERTENSION [None]
  - HYPERTHERMIA [None]
  - HYPOKALAEMIA [None]
  - MYOCLONUS [None]
  - PROTHROMBIN TIME PROLONGED [None]
  - VOMITING [None]
